FAERS Safety Report 6624053-5 (Version None)
Quarter: 2010Q1

REPORT INFORMATION
  Report Type: 
  Country: None (occurrence: None)
  Receive Date: 20100310
  Receipt Date: 20100225
  Transmission Date: 20100710
  Serious: Yes (Life-Threatening)
  Sender: FDA-Public Use
  Company Number: JP-ELI_LILLY_AND_COMPANY-JP201002007466

PATIENT
  Age: 55 Year
  Sex: Female

DRUGS (3)
  1. ZYPREXA [Suspect]
     Indication: BIPOLAR I DISORDER
     Dosage: 5 MG, DAILY (1/D)
     Route: 048
     Dates: start: 20100204, end: 20100225
  2. GANATON [Concomitant]
     Indication: ILEUS
     Route: 048
  3. GASMOTIN [Concomitant]
     Indication: ILEUS
     Route: 048

REACTIONS (2)
  - OFF LABEL USE [None]
  - WHITE BLOOD CELL COUNT DECREASED [None]
